FAERS Safety Report 16956640 (Version 1)
Quarter: 2019Q4

REPORT INFORMATION
  Report Type: Spontaneous
  Country: US (occurrence: US)
  Receive Date: 20191023
  Receipt Date: 20191023
  Transmission Date: 20200122
  Serious: No
  Sender: FDA-Public Use
  Company Number: None

PATIENT
  Age: 59 Year
  Sex: Female
  Weight: 60.75 kg

DRUGS (4)
  1. OXYCODONE [Suspect]
     Active Substance: OXYCODONE
     Indication: PROCEDURAL PAIN
     Dosage: ?          QUANTITY:1 TABLET(S);OTHER FREQUENCY:Q4-6 WITH Q1 HR X;?
     Route: 048
     Dates: start: 20191016, end: 20191017
  2. MVI [Concomitant]
     Active Substance: VITAMINS
  3. TYLENOL 1000 [Concomitant]
  4. VIT D [Concomitant]
     Active Substance: VITAMIN D NOS

REACTIONS (2)
  - Muscular weakness [None]
  - Myalgia [None]

NARRATIVE: CASE EVENT DATE: 20191016
